FAERS Safety Report 23697054 (Version 1)
Quarter: 2024Q2

REPORT INFORMATION
  Report Type: Spontaneous
  Country: US (occurrence: US)
  Receive Date: 20240402
  Receipt Date: 20240402
  Transmission Date: 20240715
  Serious: Yes (Other)
  Sender: FDA-Public Use
  Company Number: US-REGENERON PHARMACEUTICALS, INC.-2024-052480

PATIENT
  Sex: Female

DRUGS (3)
  1. EYLEA HD [Suspect]
     Active Substance: AFLIBERCEPT
     Indication: Subretinal fluid
     Dosage: 8 MG, FORMULATION: HD VIAL
     Route: 031
     Dates: start: 202309
  2. EYLEA HD [Suspect]
     Active Substance: AFLIBERCEPT
     Dosage: 8 MG, EVERY 7-8 WEEKS, FORMULATION: HD VIAL
     Route: 031
  3. EYLEA HD [Suspect]
     Active Substance: AFLIBERCEPT
     Dosage: 8 MG, EVERY 7 WEEK, FORMULATION: HD VIAL
     Route: 031

REACTIONS (2)
  - Subretinal fluid [Unknown]
  - Off label use [Unknown]

NARRATIVE: CASE EVENT DATE: 20230901
